FAERS Safety Report 5267061-1 (Version None)
Quarter: 2007Q1

REPORT INFORMATION
  Report Type: 
  Country: None (occurrence: None)
  Receive Date: 20070316
  Receipt Date: 20070305
  Transmission Date: 20070707
  Serious: Yes (Other)
  Sender: FDA-Public Use
  Company Number: GB-BAYER-200710226BNE

PATIENT
  Age: 37 Year
  Sex: Female
  Weight: 86 kg

DRUGS (2)
  1. CANESTEN DUO [Suspect]
  2. CANESTEN DUO [Suspect]

REACTIONS (1)
  - ABORTION SPONTANEOUS [None]
